FAERS Safety Report 4579268-7 (Version None)
Quarter: 2005Q1

REPORT INFORMATION
  Report Type: 
  Country: None (occurrence: None)
  Receive Date: 20050210
  Receipt Date: 20050210
  Transmission Date: 20050727
  Serious: No
  Sender: FDA-Public Use
  Company Number: None

PATIENT
  Sex: Male
  Weight: 127 kg

DRUGS (2)
  1. IDARUBICIN HCL [Suspect]
     Dosage: 12 MG/M2 (31 MG) IN 50 ML D5W IVPB OVER 1 HOUR DAILY FOR 3 DAYS ON DAYS 1, 2, AND 3
     Route: 042
     Dates: start: 20050124
  2. CYTARABINE [Suspect]
     Dosage: 1.5 GM/M2 (3.9 GM) IN 500 ML NS IV CONTINUOUS INFUSION OVER 24 HOURS DAILY ON DAYS 1-4
     Route: 042

REACTIONS (3)
  - ABDOMINAL PAIN [None]
  - PANCYTOPENIA [None]
  - RECTAL HAEMORRHAGE [None]
